FAERS Safety Report 9496410 (Version 2)
Quarter: 2015Q1

REPORT INFORMATION
  Report Type: Spontaneous
  Country: US (occurrence: None)
  Receive Date: 20130829
  Receipt Date: 20150225
  Transmission Date: 20150721
  Serious: Yes (Life-Threatening, Hospitalization)
  Sender: FDA-Public Use
  Company Number: 1713747-2013-99941

PATIENT
  Age: 69 Year
  Sex: Male
  Weight: 74.5 kg

DRUGS (17)
  1. COREG [Concomitant]
     Active Substance: CARVEDILOL
  2. PREDNISONE. [Concomitant]
     Active Substance: PREDNISONE
  3. PANTOPRAZOLE [Concomitant]
     Active Substance: PANTOPRAZOLE SODIUM
  4. FRESENIUS HEMODIALYSIS MACHINE [Concomitant]
  5. NATURALYTE  BICARBONATE [Concomitant]
     Active Substance: SODIUM BICARBONATE
  6. AMLIODIPINE [Concomitant]
  7. SIROLIMUS. [Concomitant]
     Active Substance: SIROLIMUS
  8. 0.9% SODIUM CHLORIDE INJECTION, USP IN MINI-BAG PLUS CONTAINER [Suspect]
     Active Substance: SODIUM CHLORIDE
     Indication: CHRONIC KIDNEY DISEASE
     Dosage: HEMODIALYSIS
     Dates: start: 20130606
  9. FRESENIUS COMBISET HEMODIALYSIS BLOODLINES [Concomitant]
  10. FRESENIUS 180NRE OPTIFLUX DIALYZER [Concomitant]
  11. GRANUFLO [Concomitant]
     Active Substance: ACETIC ACID\SODIUM ACETATE
  12. HYDRALAZINE [Concomitant]
     Active Substance: HYDRALAZINE HYDROCHLORIDE
  13. BIDIL [Concomitant]
     Active Substance: HYDRALAZINE HYDROCHLORIDE\ISOSORBIDE DINITRATE
  14. FUROSEMIDE. [Concomitant]
     Active Substance: FUROSEMIDE
  15. OXYCODONE [Concomitant]
     Active Substance: OXYCODONE
  16. PRAVASTATIN [Concomitant]
     Active Substance: PRAVASTATIN\PRAVASTATIN SODIUM
  17. WARFARIN [Concomitant]
     Active Substance: WARFARIN

REACTIONS (1)
  - Unresponsive to stimuli [None]

NARRATIVE: CASE EVENT DATE: 20130606
